FAERS Safety Report 4289734-X (Version None)
Quarter: 2004Q1

REPORT INFORMATION
  Report Type: 
  Country: None (occurrence: None)
  Receive Date: 20040209
  Receipt Date: 20040120
  Transmission Date: 20041129
  Serious: Yes (Disabling)
  Sender: FDA-Public Use
  Company Number: 2004BL000557

PATIENT
  Age: 83 Year
  Sex: Male

DRUGS (6)
  1. CYCLOPENTOLATE HCL [Suspect]
     Indication: PROPHYLAXIS
     Dosage: 3 GTT;ONCE A DAY; OPHTHALMIC
     Route: 047
     Dates: start: 20031107, end: 20031107
  2. MINIMS PHENYLEPHRINE HYDROCHLORIDE 2.5% (MINIMS PHENYLEPHRINE HYDROCHL [Suspect]
     Indication: PROPHYLAXIS
     Dosage: 2 GGT;ONCE A DAY;OPHTHALMIC
     Route: 047
     Dates: start: 20031107, end: 20031107
  3. CHLORAMPHENICOL [Suspect]
     Indication: PROPHYLAXIS
     Dosage: 1 GTT;ONCE A DAY OPHTHALMIC
     Route: 047
     Dates: start: 20031107, end: 20031107
  4. BENOXINATE HCL [Suspect]
     Indication: PROPHYLAXIS
     Dosage: ONCE A DAY;OPHTHALMIC
     Route: 047
     Dates: start: 20031107, end: 20031107
  5. BALANCED SALT SOLUTION [Suspect]
     Indication: SURGERY
     Dosage: UNKNOWN
     Route: 065
     Dates: start: 20031107, end: 20031107
  6. TIMOLOL MALEATE [Concomitant]

REACTIONS (2)
  - DRUG TOXICITY [None]
  - ENDOTHELIAL DYSFUNCTION [None]
